FAERS Safety Report 15058609 (Version 1)
Quarter: 2018Q2

REPORT INFORMATION
  Report Type: Spontaneous
  Country: TH (occurrence: TH)
  Receive Date: 20180625
  Receipt Date: 20180625
  Transmission Date: 20180711
  Serious: Yes (Other)
  Sender: FDA-Public Use
  Company Number: PHHY2018TH024292

PATIENT
  Age: 71 Year
  Sex: Female

DRUGS (3)
  1. EVEROLIMUS. [Suspect]
     Active Substance: EVEROLIMUS
     Dosage: 5 MG, UNK
     Route: 065
     Dates: start: 201405, end: 201712
  2. EVEROLIMUS. [Suspect]
     Active Substance: EVEROLIMUS
     Indication: BREAST CANCER
     Dosage: 10 MG, UNK
     Route: 065
     Dates: start: 201405
  3. AROMASIN [Suspect]
     Active Substance: EXEMESTANE
     Indication: BREAST CANCER
     Dosage: 25 MG, UNK
     Route: 065
     Dates: start: 201405, end: 201712

REACTIONS (15)
  - Lymphocyte count increased [Unknown]
  - Haemoglobin decreased [Unknown]
  - Lung consolidation [Unknown]
  - Brain herniation [Unknown]
  - Metastatic neoplasm [Unknown]
  - Cholelithiasis [Unknown]
  - Haematocrit decreased [Unknown]
  - Platelet count decreased [Unknown]
  - Red cell distribution width increased [Unknown]
  - Metastases to bone [Unknown]
  - Metastases to liver [Unknown]
  - Subdural haematoma [Unknown]
  - Red blood cell count decreased [Unknown]
  - Mucosal inflammation [Unknown]
  - White blood cell count increased [Unknown]

NARRATIVE: CASE EVENT DATE: 20170622
